FAERS Safety Report 21290014 (Version 4)
Quarter: 2022Q4

REPORT INFORMATION
  Report Type: Report from Study
  Country: EG (occurrence: EG)
  Receive Date: 20220902
  Receipt Date: 20221217
  Transmission Date: 20230113
  Serious: Yes (Other)
  Sender: FDA-Public Use
  Company Number: EG-NOVARTISPH-NVSC2022EG193922

PATIENT
  Age: 11 Year
  Sex: Female

DRUGS (4)
  1. OMNITROPE [Suspect]
     Active Substance: SOMATROPIN
     Indication: Growth hormone deficiency
     Dosage: 1.1 MG, QD
     Route: 058
     Dates: start: 20210531
  2. OMNITROPE [Suspect]
     Active Substance: SOMATROPIN
     Dosage: 1.5 MG, QD
     Route: 058
     Dates: start: 20220827
  3. VIDROP [Concomitant]
     Indication: Nutritional supplementation
     Dosage: 1 DRP, QD
     Route: 048
     Dates: start: 20210531
  4. FEROGLOBIN [Concomitant]
     Indication: Nutritional supplementation
     Dosage: 5 CM, QD
     Route: 048
     Dates: start: 20210531, end: 202208

REACTIONS (10)
  - Rash erythematous [Not Recovered/Not Resolved]
  - Injection site pain [Recovered/Resolved]
  - Acne [Recovered/Resolved]
  - Drug ineffective [Not Recovered/Not Resolved]
  - Product availability issue [Not Recovered/Not Resolved]
  - Underdose [Recovered/Resolved]
  - Wrong technique in product usage process [Recovered/Resolved]
  - Incorrect dose administered [Recovered/Resolved]
  - Wrong technique in product usage process [Not Recovered/Not Resolved]
  - Product dose omission issue [Not Recovered/Not Resolved]

NARRATIVE: CASE EVENT DATE: 20210531
